FAERS Safety Report 10339518 (Version 3)
Quarter: 2014Q3

REPORT INFORMATION
  Report Type: Report from Study
  Country: HU (occurrence: HU)
  Receive Date: 20140724
  Receipt Date: 20140821
  Transmission Date: 20150326
  Serious: Yes (Hospitalization, Other)
  Sender: FDA-Public Use
  Company Number: HU-SA-2014SA096874

PATIENT
  Age: 69 Year
  Sex: Female
  Weight: 71 kg

DRUGS (3)
  1. CLEXANE [Suspect]
     Active Substance: ENOXAPARIN SODIUM
     Indication: PRODUCT USED FOR UNKNOWN INDICATION
     Route: 065
     Dates: start: 20131204
  2. TRIASYN [Concomitant]
  3. RYTMONORM [Concomitant]
     Active Substance: PROPAFENONE

REACTIONS (2)
  - Concussion [Recovering/Resolving]
  - Facial bones fracture [Unknown]

NARRATIVE: CASE EVENT DATE: 20131204
